FAERS Safety Report 4463297-8 (Version None)
Quarter: 2004Q3

REPORT INFORMATION
  Report Type: 
  Country: None (occurrence: None)
  Receive Date: 20040930
  Receipt Date: 20040625
  Transmission Date: 20050211
  Serious: No
  Sender: FDA-Public Use
  Company Number: US-BRISTOL-MYERS SQUIBB COMPANY-12636684

PATIENT

DRUGS (2)
  1. REYATAZ [Suspect]
  2. RITONAVIR [Concomitant]

REACTIONS (1)
  - BLOOD GLUCOSE INCREASED [None]
